FAERS Safety Report 12111320 (Version 2)
Quarter: 2016Q2

REPORT INFORMATION
  Report Type: Report from Study
  Country: US (occurrence: US)
  Receive Date: 20160224
  Receipt Date: 20160503
  Transmission Date: 20160815
  Serious: Yes (Death)
  Sender: FDA-Public Use
  Company Number: US-PFIZER INC-2016108050

PATIENT

DRUGS (2)
  1. TEMSIROLIMUS [Suspect]
     Active Substance: TEMSIROLIMUS
     Indication: NEOPLASM MALIGNANT
     Dosage: UNK, CYCLIC (OVER 0.5 HOURS ON DAYS 1 AND 8 (SCHEDULE B) EVERY 21 DAYS)
     Route: 042
  2. IXABEPILONE [Suspect]
     Active Substance: IXABEPILONE
     Indication: NEOPLASM MALIGNANT
     Dosage: UNK, CYCLIC (OVER 3 HOURS ON DAY 1)
     Route: 042

REACTIONS (1)
  - Pulmonary haemorrhage [Fatal]
